FAERS Safety Report 8432985-0 (Version None)
Quarter: 2012Q2

REPORT INFORMATION
  Report Type: 
  Country: None (occurrence: None)
  Receive Date: 20120613
  Receipt Date: 20120605
  Transmission Date: 20120825
  Serious: Yes (Other)
  Sender: FDA-Public Use
  Company Number: US-ROCHE-1076141

PATIENT
  Sex: Female

DRUGS (5)
  1. TAXOTERE [Suspect]
     Indication: BREAST CANCER METASTATIC
     Dosage: 8 COURSES
  2. HERCEPTIN [Suspect]
     Indication: BREAST CANCER METASTATIC
     Dosage: 8 COURSES
     Dates: start: 20110801
  3. LAPATINIB [Concomitant]
     Indication: BREAST CANCER METASTATIC
  4. HERCEPTIN [Suspect]
  5. CARBOPLATIN [Suspect]
     Indication: BREAST CANCER METASTATIC
     Dosage: 8 COURSES

REACTIONS (5)
  - METASTASES TO LUNG [None]
  - MASTECTOMY [None]
  - DISEASE PROGRESSION [None]
  - NEOPLASM PROGRESSION [None]
  - BREAST CANCER [None]
